FAERS Safety Report 8605800-X (Version None)
Quarter: 2012Q3

REPORT INFORMATION
  Report Type: 
  Country: None (occurrence: None)
  Receive Date: 20120809
  Receipt Date: 20120809
  Transmission Date: 20120928
  Serious: Yes (Hospitalization)
  Sender: FDA-Public Use
  Company Number: None

PATIENT
  Age: 64 Year
  Sex: Male
  Weight: 72.3 kg

DRUGS (1)
  1. CHLORTHALIDONE [Suspect]
     Dosage: 25 MG EVERY DAY PO
     Route: 048
     Dates: start: 20120613, end: 20120702

REACTIONS (1)
  - HYPONATRAEMIA [None]
